FAERS Safety Report 8891282 (Version 1)
Quarter: 2012Q4

REPORT INFORMATION
  Report Type: 
  Country: US (occurrence: US)
  Receive Date: 20121107
  Receipt Date: 20121107
  Transmission Date: 20130627
  Serious: No
  Sender: FDA-Public Use
  Company Number: US-009507513-2012SP004406

PATIENT
  Age: 3 Year
  Sex: Female
  Weight: 13.61 kg

DRUGS (3)
  1. CLARITIN [Suspect]
     Indication: NASOPHARYNGITIS
     Dosage: 10 mg, qd
     Route: 048
     Dates: start: 20120111
  2. CLARITIN [Suspect]
     Indication: MEDICAL OBSERVATION
  3. CLARITIN [Suspect]
     Indication: HYPERSENSITIVITY

REACTIONS (2)
  - Overdose [Recovered/Resolved]
  - Off label use [Unknown]
